FAERS Safety Report 12681751 (Version 1)
Quarter: 2016Q3

REPORT INFORMATION
  Report Type: Spontaneous
  Country: US (occurrence: US)
  Receive Date: 20160824
  Receipt Date: 20160824
  Transmission Date: 20161109
  Serious: No
  Sender: FDA-Public Use
  Company Number: US-FRI-1000082878

PATIENT
  Sex: Female
  Weight: 70.3 kg

DRUGS (5)
  1. NEXIUM [Concomitant]
     Active Substance: ESOMEPRAZOLE MAGNESIUM
  2. LEXAPRO [Suspect]
     Active Substance: ESCITALOPRAM OXALATE
     Indication: DEPRESSION
     Dosage: 5MG
     Route: 048
  3. VITAMINS [Concomitant]
     Active Substance: VITAMINS
  4. OTC ALLERGY MEDICATIONS [Concomitant]
     Indication: HYPERSENSITIVITY
  5. LUNESTA [Concomitant]
     Active Substance: ESZOPICLONE
     Indication: INSOMNIA

REACTIONS (1)
  - Hyponatraemia [Recovered/Resolved]
